FAERS Safety Report 4423964-9 (Version None)
Quarter: 2004Q3

REPORT INFORMATION
  Report Type: 
  Country: None (occurrence: None)
  Receive Date: 20040809
  Receipt Date: 20040727
  Transmission Date: 20050211
  Serious: Yes (Other)
  Sender: FDA-Public Use
  Company Number: 2004225668AU

PATIENT
  Age: 64 Year
  Sex: Male

DRUGS (1)
  1. CAVERJECT IMPULSE (ALPROSTADIL) POWDER, STERILE, 5-40UG/ML [Suspect]
     Indication: ERECTILE DYSFUNCTION
     Dosage: INT CORP CAVERN
     Route: 011

REACTIONS (4)
  - GENITAL ERYTHEMA [None]
  - HYPERSENSITIVITY [None]
  - PAINFUL ERECTION [None]
  - SKIN DISCOLOURATION [None]
